FAERS Safety Report 13670769 (Version 1)
Quarter: 2017Q2

REPORT INFORMATION
  Report Type: Spontaneous
  Country: US (occurrence: US)
  Receive Date: 20170620
  Receipt Date: 20170620
  Transmission Date: 20170830
  Serious: No
  Sender: FDA-Public Use
  Company Number: US-ROCHE-1390896

PATIENT
  Age: 66 Year
  Sex: Female

DRUGS (4)
  1. XELODA [Suspect]
     Active Substance: CAPECITABINE
     Indication: BREAST CANCER
     Dosage: 14 DAYS ON, 7 DAYS OFF,  3 TAB
     Route: 048
     Dates: start: 20140421
  2. XELODA [Suspect]
     Active Substance: CAPECITABINE
     Indication: HEPATIC CANCER
  3. ALPHAGAN P [Concomitant]
     Active Substance: BRIMONIDINE TARTRATE
  4. TENORMIN [Concomitant]
     Active Substance: ATENOLOL

REACTIONS (4)
  - Sensory disturbance [Not Recovered/Not Resolved]
  - Pruritus [Recovering/Resolving]
  - Flushing [Not Recovered/Not Resolved]
  - Pain [Not Recovered/Not Resolved]

NARRATIVE: CASE EVENT DATE: 20140423
